FAERS Safety Report 16133274 (Version 2)
Quarter: 2019Q2

REPORT INFORMATION
  Report Type: Spontaneous
  Country: ES (occurrence: ES)
  Receive Date: 20190329
  Receipt Date: 20190416
  Transmission Date: 20190711
  Serious: Yes (Disabling)
  Sender: FDA-Public Use
  Company Number: ES-009507513-1903ESP011886

PATIENT
  Age: 73 Year
  Sex: Female

DRUGS (3)
  1. SINEMET PLUS 25/100 MG (IR) [Suspect]
     Active Substance: CARBIDOPA\LEVODOPA
     Dosage: ONE TABLET THREE TIMES A DAY
     Route: 048
     Dates: start: 201902, end: 2019
  2. SINEMET PLUS 25/100 MG (IR) [Suspect]
     Active Substance: CARBIDOPA\LEVODOPA
     Indication: PARKINSON^S DISEASE
     Dosage: HALF TABLET AT 7 AM, HALF TABLET AT 3 PM AND HALF TABLET AT 11 PM
     Route: 048
     Dates: start: 20170205, end: 201902
  3. SINEMET PLUS 25/100 MG (IR) [Suspect]
     Active Substance: CARBIDOPA\LEVODOPA
     Dosage: HALF TABLET EVERY 8 HOURS
     Dates: start: 2019

REACTIONS (8)
  - Eye swelling [Recovered/Resolved]
  - Salivary hypersecretion [Not Recovered/Not Resolved]
  - Tremor [Not Recovered/Not Resolved]
  - Nervousness [Not Recovered/Not Resolved]
  - Swelling face [Recovered/Resolved]
  - Swollen tongue [Recovered/Resolved]
  - Gait inability [Not Recovered/Not Resolved]
  - Headache [Not Recovered/Not Resolved]

NARRATIVE: CASE EVENT DATE: 201902
